FAERS Safety Report 5350785-5 (Version None)
Quarter: 2007Q2

REPORT INFORMATION
  Report Type: 
  Country: None (occurrence: None)
  Receive Date: 20070608
  Receipt Date: 20070528
  Transmission Date: 20071010
  Serious: Yes (Other)
  Sender: FDA-Public Use
  Company Number: JP-ROCHE-494785

PATIENT
  Age: 13 Year
  Sex: Male
  Weight: 53 kg

DRUGS (4)
  1. TAMIFLU [Suspect]
     Route: 048
     Dates: start: 20070319
  2. TELGIN G [Concomitant]
     Route: 048
     Dates: start: 20070319, end: 20070321
  3. ASVERIN [Concomitant]
     Route: 048
     Dates: start: 20070319, end: 20070321
  4. CALONAL [Concomitant]
     Route: 048
     Dates: start: 20070319, end: 20070321

REACTIONS (1)
  - DELIRIUM [None]
